FAERS Safety Report 21049839 (Version 2)
Quarter: 2022Q4

REPORT INFORMATION
  Report Type: Spontaneous
  Country: US (occurrence: US)
  Receive Date: 20220706
  Receipt Date: 20221017
  Transmission Date: 20230113
  Serious: No
  Sender: FDA-Public Use
  Company Number: US-PFIZER INC-PV202200013814

PATIENT
  Age: 74 Year
  Sex: Male
  Weight: 78.61 kg

DRUGS (4)
  1. RAPAMUNE [Suspect]
     Active Substance: SIROLIMUS
     Indication: Transplant
     Dosage: 1 MG, 1X/DAY, (1MG WHITE TABLET BY MOUTH)
     Route: 048
  2. TACROLIMUS [Concomitant]
     Active Substance: TACROLIMUS
     Indication: Transplant
     Dosage: 5 MG, 2X/DAY, (1MG; 3MG IN MORNING AND 2 MG AT NIGHT)
  3. METHYLPREDNISOLONE [Concomitant]
     Active Substance: METHYLPREDNISOLONE
     Dosage: 4 MG, ALTERNATE DAY, (4MG; 1/2 TABLET EVERY OTHER DAY)
  4. BACTRIM [Concomitant]
     Active Substance: SULFAMETHOXAZOLE\TRIMETHOPRIM
     Indication: Transplant
     Dosage: UNK

REACTIONS (1)
  - Blood glucose decreased [Unknown]
